FAERS Safety Report 5010879-0 (Version None)
Quarter: 2006Q2

REPORT INFORMATION
  Report Type: 
  Country: None (occurrence: None)
  Receive Date: 20060525
  Receipt Date: 20060518
  Transmission Date: 20061013
  Serious: Yes (Hospitalization)
  Sender: FDA-Public Use
  Company Number: US-JNJFOC-20060403244

PATIENT
  Sex: Female

DRUGS (10)
  1. REMICADE [Suspect]
     Indication: RHEUMATOID ARTHRITIS
     Route: 042
  2. ENBREL [Concomitant]
  3. EFFEXOR [Concomitant]
  4. PREDNISONE TAB [Concomitant]
  5. HYDROCODONE BITARTRATE + ACETAMINOPHEN [Concomitant]
  6. HYDROCODONE BITARTRATE + ACETAMINOPHEN [Concomitant]
  7. ESTROVEN [Concomitant]
  8. TRAZODONE HCL [Concomitant]
  9. TYLENOL (GELTAB) [Concomitant]
  10. AMOXICILLIN [Concomitant]
     Indication: RESPIRATORY DISORDER

REACTIONS (3)
  - COLITIS [None]
  - FOOD POISONING [None]
  - RESPIRATORY DISORDER [None]
